FAERS Safety Report 9136963 (Version 1)
Quarter: 2013Q1

REPORT INFORMATION
  Report Type: Spontaneous
  Country: US (occurrence: US)
  Receive Date: 20130304
  Receipt Date: 20130304
  Transmission Date: 20140127
  Serious: No
  Sender: FDA-Public Use
  Company Number: US-ABBOTT-12P-163-0946628-00

PATIENT
  Age: 74 None
  Sex: Male
  Weight: 99.43 kg

DRUGS (13)
  1. ANDROGEL 1% [Suspect]
     Indication: BLOOD TESTOSTERONE DECREASED
     Dosage: DAILY
     Dates: start: 201204
  2. WARFARIN [Concomitant]
     Indication: HEART VALVE REPLACEMENT
  3. WARFARIN [Concomitant]
  4. L THYROXINE [Concomitant]
     Indication: HYPOTHYROIDISM
  5. BABY ASPIRIN [Concomitant]
     Indication: CARDIAC DISORDER
  6. CARVEDILOL [Concomitant]
     Indication: CARDIAC DISORDER
  7. CARVEDILOL [Concomitant]
     Indication: BLOOD PRESSURE
  8. ALLOPURINOL [Concomitant]
     Indication: GOUT
  9. NIACIN OTC [Concomitant]
     Indication: BLOOD CHOLESTEROL
  10. FISH OIL [Concomitant]
     Indication: BLOOD CHOLESTEROL
  11. OMEPRAZOLE [Concomitant]
     Indication: HYPERCHLORHYDRIA
  12. LISINOPRIL [Concomitant]
     Indication: CARDIAC DISORDER
  13. DOXAZOSIN [Concomitant]
     Indication: BLADDER DISORDER

REACTIONS (3)
  - International normalised ratio decreased [Not Recovered/Not Resolved]
  - Drug ineffective [Not Recovered/Not Resolved]
  - Blood testosterone decreased [Not Recovered/Not Resolved]
